FAERS Safety Report 20745920 (Version 1)
Quarter: 2022Q2

REPORT INFORMATION
  Report Type: Spontaneous
  Country: US (occurrence: US)
  Receive Date: 20220425
  Receipt Date: 20220425
  Transmission Date: 20220721
  Serious: No
  Sender: FDA-Public Use
  Company Number: US-BIOGEN-2022BI01115059

PATIENT
  Sex: Female

DRUGS (1)
  1. ADUHELM [Suspect]
     Active Substance: ADUCANUMAB-AVWA
     Indication: Dementia Alzheimer^s type
     Dosage: INFUSE 6 MG/KG INTRAVENOUSLY AT WEEKS 16 AND 20. TO BE ADMINISTERED IN OFFICE
     Route: 042

REACTIONS (1)
  - Nephrolithiasis [Unknown]
